FAERS Safety Report 20851018 (Version 1)
Quarter: 2022Q2

REPORT INFORMATION
  Report Type: Spontaneous
  Country: US (occurrence: None)
  Receive Date: 20220519
  Receipt Date: 20220519
  Transmission Date: 20220721
  Serious: Yes (Other)
  Sender: FDA-Public Use
  Company Number: 2022A186353

PATIENT
  Age: 84 Year
  Sex: Male
  Weight: 97 kg

DRUGS (5)
  1. ANDEXANET ALFA [Interacting]
     Active Substance: ANDEXANET ALFA
     Indication: Haemorrhage
     Dosage: 400 MG BOLUS FOLLOWED BY A 4 MG/MINUTE INFUSION
     Route: 040
  2. HEPARIN [Interacting]
     Active Substance: HEPARIN SODIUM
     Dosage: 5000 UNITS
     Route: 065
  3. ARGATROBAN [Concomitant]
     Active Substance: ARGATROBAN
     Route: 065
  4. PRESSOR [Concomitant]
     Route: 065
  5. APIXABAN [Concomitant]
     Active Substance: APIXABAN
     Route: 065

REACTIONS (3)
  - Arterial thrombosis [Unknown]
  - Drug interaction [Unknown]
  - Drug ineffective [Unknown]
